FAERS Safety Report 8835332 (Version 2)
Quarter: 2012Q4

REPORT INFORMATION
  Report Type: 
  Country: US (occurrence: US)
  Receive Date: 20121011
  Receipt Date: 20121105
  Transmission Date: 20130627
  Serious: Yes (Death, Other)
  Sender: FDA-Public Use
  Company Number: US-JNJFOC-20121005997

PATIENT
  Sex: Female
  Weight: 78.93 kg

DRUGS (8)
  1. XARELTO [Suspect]
     Indication: THROMBOSIS PROPHYLAXIS
     Route: 048
     Dates: start: 20120801, end: 20120830
  2. XARELTO [Suspect]
     Indication: KNEE ARTHROPLASTY
     Route: 048
     Dates: start: 20120801, end: 20120830
  3. AMLODIPINE [Concomitant]
  4. SIMVASTATIN [Concomitant]
     Indication: HYPERTENSION
  5. VERAPAMIL [Concomitant]
     Indication: BLOOD CHOLESTEROL INCREASED
  6. HCTZ [Concomitant]
  7. DIOVAN [Concomitant]
  8. ACTOS [Concomitant]

REACTIONS (3)
  - Death [Fatal]
  - Pulmonary embolism [Fatal]
  - Depression [Unknown]
